FAERS Safety Report 19946890 (Version 1)
Quarter: 2021Q4

REPORT INFORMATION
  Report Type: Spontaneous
  Country: US (occurrence: US)
  Receive Date: 20211012
  Receipt Date: 20211012
  Transmission Date: 20220304
  Serious: No
  Sender: FDA-Public Use
  Company Number: US-KARYOPHARM-2021KPT001208

PATIENT

DRUGS (9)
  1. XPOVIO [Suspect]
     Active Substance: SELINEXOR
     Indication: Diffuse large B-cell lymphoma
     Dosage: 60 MG, 2X/WEEK
     Route: 048
     Dates: start: 20210816, end: 20210911
  2. ACYCLOVIR [Concomitant]
     Active Substance: ACYCLOVIR
  3. PROCHLORPERAZINE MALEATE [Concomitant]
     Active Substance: PROCHLORPERAZINE MALEATE
  4. LACTULOSE [Concomitant]
     Active Substance: LACTULOSE
  5. LINZESS [Concomitant]
     Active Substance: LINACLOTIDE
  6. OLANZAPINE [Concomitant]
     Active Substance: OLANZAPINE
  7. ZOFRAN [Concomitant]
     Active Substance: ONDANSETRON HYDROCHLORIDE
  8. OXYCODONE [Concomitant]
     Active Substance: OXYCODONE
  9. OXCARBAZEPINE [Concomitant]
     Active Substance: OXCARBAZEPINE

REACTIONS (2)
  - Visual impairment [Unknown]
  - Syncope [Unknown]

NARRATIVE: CASE EVENT DATE: 20210901
